FAERS Safety Report 24058913 (Version 1)
Quarter: 2024Q3

REPORT INFORMATION
  Report Type: Spontaneous
  Country: FR (occurrence: FR)
  Receive Date: 20240708
  Receipt Date: 20240708
  Transmission Date: 20241017
  Serious: Yes (Hospitalization, Other)
  Sender: AUROBINDO
  Company Number: FR-AFSSAPS-MP2024001059

PATIENT
  Age: 1 Month
  Sex: Female
  Weight: 2.36 kg

DRUGS (6)
  1. BISOPROLOL [Suspect]
     Active Substance: BISOPROLOL\BISOPROLOL FUMARATE
     Indication: Dilated cardiomyopathy
     Dosage: 5 MILLIGRAM, ONCE A DAY
     Route: 064
     Dates: start: 20210824, end: 20210920
  2. BISOPROLOL [Suspect]
     Active Substance: BISOPROLOL\BISOPROLOL FUMARATE
     Dosage: 5 MILLIGRAM, TWO TIMES A DAY (5MG IN THE MORNING, THEN INCREASED TO 5MG IN THE MORNING AND EVENING)
     Route: 064
     Dates: start: 20210920, end: 20220427
  3. FUROSEMIDE [Suspect]
     Active Substance: FUROSEMIDE
     Indication: Dilated cardiomyopathy
     Dosage: 40 MILLIGRAM (1 TAB IN THE MORNING, THEN FROM 09/20/2021 2 TABS PER DAY (40 MG))
     Route: 064
     Dates: start: 20210824, end: 20220427
  4. ALDACTONE [Suspect]
     Active Substance: SPIRONOLACTONE
     Indication: Dilated cardiomyopathy
     Dosage: 50 MILLIGRAM, ONCE A DAY
     Route: 064
     Dates: start: 20210824, end: 20210920
  5. ENTRESTO [Suspect]
     Active Substance: SACUBITRIL\VALSARTAN
     Indication: Dilated cardiomyopathy
     Dosage: UNK (1 TABLET MORNING AND EVENING)
     Route: 064
     Dates: start: 20210824, end: 20210920
  6. DAPAGLIFLOZIN [Suspect]
     Active Substance: DAPAGLIFLOZIN
     Indication: Dilated cardiomyopathy
     Dosage: 10 MILLIGRAM
     Route: 064
     Dates: start: 20210911, end: 20210920

REACTIONS (3)
  - Left ventricular dysfunction [Unknown]
  - Patent ductus arteriosus [Unknown]
  - Maternal exposure during pregnancy [Recovered/Resolved]
